FAERS Safety Report 6731978-9 (Version None)
Quarter: 2010Q2

REPORT INFORMATION
  Report Type: 
  Country: None (occurrence: None)
  Receive Date: 20100519
  Receipt Date: 20100507
  Transmission Date: 20101027
  Serious: Yes (Other)
  Sender: FDA-Public Use
  Company Number: US-JNJFOC-20100503867

PATIENT
  Age: 2 Year
  Sex: Female

DRUGS (2)
  1. CONCENTRATED TYLENOL INFANT DROPS [Suspect]
  2. CONCENTRATED TYLENOL INFANT DROPS [Suspect]
     Indication: TEETHING

REACTIONS (5)
  - COLD SWEAT [None]
  - HYPERSOMNIA [None]
  - LETHARGY [None]
  - LOSS OF CONSCIOUSNESS [None]
  - PRODUCT MEASURED POTENCY ISSUE [None]
